FAERS Safety Report 4900317-8 (Version None)
Quarter: 2006Q1

REPORT INFORMATION
  Report Type: 
  Country: None (occurrence: None)
  Receive Date: 20060203
  Receipt Date: 20060126
  Transmission Date: 20060701
  Serious: Yes (Other)
  Sender: FDA-Public Use
  Company Number: US-GLAXOSMITHKLINE-A0591786A

PATIENT
  Sex: Female

DRUGS (2)
  1. COMBIVIR [Suspect]
     Indication: HIV INFECTION
     Route: 048
     Dates: start: 20051209
  2. NELFINAVIR [Concomitant]
     Indication: HIV INFECTION
     Dosage: 1250MG PER DAY
     Route: 048
     Dates: start: 20051209

REACTIONS (3)
  - DRUG EXPOSURE DURING PREGNANCY [None]
  - ULTRASOUND SCAN ABNORMAL [None]
  - VENTRICULAR SEPTAL DEFECT [None]
